FAERS Safety Report 4685552-9 (Version None)
Quarter: 2005Q2

REPORT INFORMATION
  Report Type: 
  Country: None (occurrence: None)
  Receive Date: 20050603
  Receipt Date: 20050519
  Transmission Date: 20051028
  Serious: Yes (Hospitalization, Disabling)
  Sender: FDA-Public Use
  Company Number: 2005-00505

PATIENT
  Age: 67 Year
  Sex: Male

DRUGS (7)
  1. IMMUCYST [Suspect]
     Indication: BLADDER CANCER
     Dosage: (81.0 MG) B. IN., BLADDER
     Dates: start: 20040827, end: 20041022
  2. CISPLATIN [Suspect]
     Indication: BLADDER CANCER
     Dosage: (30.0 MG), I.V.
     Route: 042
     Dates: start: 20041006
  3. EPIRUBICIN [Suspect]
     Indication: BLADDER CANCER
     Dosage: (50.0 MG), I.V.
     Route: 042
     Dates: start: 20041006
  4. CARBAZOCHROME SODIUM SULFONATE [Concomitant]
  5. NAFTOPIDIL [Concomitant]
  6. LOXOPROFEN SODIUM [Concomitant]
  7. AMITRIPTYLINE HYDROCHLORIDE [Concomitant]

REACTIONS (6)
  - BLADDER CONSTRICTION [None]
  - BLADDER NEOPLASM [None]
  - DYSURIA [None]
  - HAEMATURIA [None]
  - MALIGNANT NEOPLASM PROGRESSION [None]
  - POLLAKIURIA [None]
